FAERS Safety Report 4515225-4 (Version None)
Quarter: 2004Q4

REPORT INFORMATION
  Report Type: 
  Country: None (occurrence: None)
  Receive Date: 20041201
  Receipt Date: 20041124
  Transmission Date: 20050328
  Serious: Yes (Death)
  Sender: FDA-Public Use
  Company Number: JP-GLAXOSMITHKLINE-B0358381A

PATIENT
  Age: 65 Year
  Sex: Male

DRUGS (1)
  1. ZEFIX [Suspect]
     Indication: HEPATIC CIRRHOSIS
     Dosage: 100MG PER DAY
     Route: 048
     Dates: start: 20040813, end: 20041121

REACTIONS (1)
  - HEPATIC FAILURE [None]
